FAERS Safety Report 5352032-7 (Version None)
Quarter: 2007Q2

REPORT INFORMATION
  Report Type: 
  Country: None (occurrence: None)
  Receive Date: 20070607
  Receipt Date: 20070607
  Transmission Date: 20071010
  Serious: No
  Sender: FDA-Public Use
  Company Number: None

PATIENT
  Age: 51 Year
  Sex: Female
  Weight: 47.7 kg

DRUGS (2)
  1. ZOSYN [Suspect]
     Indication: RHINITIS
     Dosage: 3.375G Q6H IV
     Route: 042
     Dates: start: 20070522, end: 20070523
  2. VANCOMYCIN [Suspect]
     Dosage: 1GM DAILY IV
     Route: 042
     Dates: start: 20070522, end: 20070529

REACTIONS (2)
  - DRUG LEVEL INCREASED [None]
  - RASH GENERALISED [None]
